FAERS Safety Report 4807142-7 (Version None)
Quarter: 2005Q4

REPORT INFORMATION
  Report Type: 
  Country: None (occurrence: None)
  Receive Date: 20051024
  Receipt Date: 20050804
  Transmission Date: 20060501
  Serious: Yes (Hospitalization, Disabling, Other)
  Sender: FDA-Public Use
  Company Number: CA-AMGEN-US146907

PATIENT
  Sex: Female
  Weight: 52.9 kg

DRUGS (9)
  1. ARANESP [Suspect]
     Indication: RENAL FAILURE CHRONIC
     Route: 058
     Dates: start: 20050101
  2. EPREX [Suspect]
     Indication: RENAL FAILURE CHRONIC
     Route: 058
     Dates: start: 20040611, end: 20041001
  3. AMLODIPINE [Concomitant]
  4. CELLCEPT [Concomitant]
  5. OSMOSAL [Concomitant]
  6. TACROLIMUS [Concomitant]
  7. CYCLOSPORINE [Concomitant]
  8. RAMIPRIL [Concomitant]
  9. IRON [Concomitant]
     Dates: start: 20050204

REACTIONS (3)
  - DRUG INEFFECTIVE [None]
  - KIDNEY TRANSPLANT REJECTION [None]
  - REFRACTORY ANAEMIA [None]
